FAERS Safety Report 5709097-X (Version None)
Quarter: 2008Q2

REPORT INFORMATION
  Report Type: 
  Country: None (occurrence: None)
  Receive Date: 20080416
  Receipt Date: 20080416
  Transmission Date: 20081010
  Serious: Yes (Death, Other)
  Sender: FDA-Public Use
  Company Number: None

PATIENT
  Sex: Female
  Weight: 77.5651 kg

DRUGS (1)
  1. TRASYLOL [Suspect]
     Indication: HAEMORRHAGE

REACTIONS (1)
  - ANOXIC ENCEPHALOPATHY [None]
